FAERS Safety Report 18173335 (Version 2)
Quarter: 2020Q3

REPORT INFORMATION
  Report Type: Spontaneous
  Country: US (occurrence: US)
  Receive Date: 20200819
  Receipt Date: 20200928
  Transmission Date: 20201103
  Serious: Yes (Other)
  Sender: FDA-Public Use
  Company Number: US-GILEAD-2020-0489972

PATIENT
  Age: 63 Year
  Sex: Male
  Weight: 62.59 kg

DRUGS (53)
  1. ALENDRONATE [Concomitant]
     Active Substance: ALENDRONATE SODIUM
  2. BETA CAROTENE. [Concomitant]
     Active Substance: BETA CAROTENE
  3. RANITIDINE. [Concomitant]
     Active Substance: RANITIDINE
  4. SELENIUM [Concomitant]
     Active Substance: SELENIUM
  5. TAMSULOSIN [Concomitant]
     Active Substance: TAMSULOSIN
  6. VITAMIN B12 [Concomitant]
     Active Substance: CYANOCOBALAMIN
  7. VITAMIN E [Concomitant]
     Active Substance: .ALPHA.-TOCOPHEROL
  8. ZOSYN [Concomitant]
     Active Substance: PIPERACILLIN SODIUM\TAZOBACTAM SODIUM
  9. ABACAVIR. [Concomitant]
     Active Substance: ABACAVIR
  10. HYDROCODONE [Concomitant]
     Active Substance: HYDROCODONE
  11. LORAZEPAM. [Concomitant]
     Active Substance: LORAZEPAM
  12. LOSARTAN. [Concomitant]
     Active Substance: LOSARTAN
  13. MELATONIN [Concomitant]
     Active Substance: MELATONIN
  14. VITAMINS NOS [Concomitant]
     Active Substance: VITAMINS
  15. PEPCID [ALUMINIUM HYDROXIDE GEL, DRIED;MAGNESIUM CARBONATE] [Concomitant]
     Active Substance: ALUMINUM HYDROXIDE\MAGNESIUM CARBONATE
  16. VITAMIN B [Concomitant]
     Active Substance: VITAMIN B
  17. ZANTAC [Concomitant]
     Active Substance: RANITIDINE HYDROCHLORIDE
  18. GENVOYA [Concomitant]
     Active Substance: COBICISTAT\ELVITEGRAVIR\EMTRICITABINE\TENOFOVIR ALAFENAMIDE FUMARATE
  19. CEPHALEXIN [CEFALEXIN] [Concomitant]
     Active Substance: CEPHALEXIN
  20. CETIRIZINE [Concomitant]
     Active Substance: CETIRIZINE HYDROCHLORIDE
  21. FLOMAX [Concomitant]
     Active Substance: TAMSULOSIN HYDROCHLORIDE
  22. LOMOTIL [LOPERAMIDE HYDROCHLORIDE] [Concomitant]
     Active Substance: LOPERAMIDE HYDROCHLORIDE
  23. LOVENOX [LEVOFLOXACIN] [Concomitant]
     Active Substance: LEVOFLOXACIN
  24. ZYRTEC [Concomitant]
     Active Substance: CETIRIZINE HYDROCHLORIDE
  25. PROLIA [Concomitant]
     Active Substance: DENOSUMAB
  26. REVATIO [Concomitant]
     Active Substance: SILDENAFIL CITRATE
  27. TRAMADOL. [Concomitant]
     Active Substance: TRAMADOL
  28. BIKTARVY [Concomitant]
     Active Substance: BICTEGRAVIR SODIUM\EMTRICITABINE\TENOFOVIR ALAFENAMIDE FUMARATE
  29. CRIXIVAN [Concomitant]
     Active Substance: INDINAVIR SULFATE
  30. ACYCLOVIR [ACICLOVIR] [Concomitant]
     Active Substance: ACYCLOVIR
  31. CALCIUM MAGNESIUM ZINC [CALCIUM;MAGNESIUM;ZINC] [Concomitant]
  32. OSTEO BI?FLEX [CHONDROITIN SULFATE;GLUCOSAMINE HYDROCHLORIDE] [Concomitant]
  33. VIREAD [Suspect]
     Active Substance: TENOFOVIR DISOPROXIL FUMARATE
     Indication: HIV INFECTION
     Dosage: UNK
     Route: 065
     Dates: start: 2002
  34. VIREAD [Suspect]
     Active Substance: TENOFOVIR DISOPROXIL FUMARATE
     Dosage: UNK
     Route: 065
     Dates: start: 2010, end: 20160908
  35. HYDROCHLOROTHIAZIDE. [Concomitant]
     Active Substance: HYDROCHLOROTHIAZIDE
  36. IBUPROFEN. [Concomitant]
     Active Substance: IBUPROFEN
  37. SUSTIVA [Concomitant]
     Active Substance: EFAVIRENZ
  38. AMLODIPINE [Concomitant]
     Active Substance: AMLODIPINE BESYLATE
  39. FOSAMAX [Concomitant]
     Active Substance: ALENDRONATE SODIUM
  40. GABAPENTIN. [Concomitant]
     Active Substance: GABAPENTIN
  41. HYDROCODONE/ACETAMINOPHEN [Concomitant]
     Active Substance: ACETAMINOPHEN\HYDROCODONE
  42. OMEPRAZOLE. [Concomitant]
     Active Substance: OMEPRAZOLE
  43. PLAVIX [Concomitant]
     Active Substance: CLOPIDOGREL BISULFATE
  44. ZOVIRAX [Concomitant]
     Active Substance: ACYCLOVIR
  45. EPIVIR [Concomitant]
     Active Substance: LAMIVUDINE
  46. ZIAGEN [Concomitant]
     Active Substance: ABACAVIR SULFATE
  47. ASPIRIN [ACETYLSALICYLIC ACID] [Concomitant]
     Active Substance: ASPIRIN
  48. CHOLECALCIFEROL [Concomitant]
     Active Substance: CHOLECALCIFEROL
  49. FISH OIL [Concomitant]
     Active Substance: FISH OIL
  50. GLUCOSAMINE HCL [Concomitant]
     Active Substance: GLUCOSAMINE
  51. TRIMETHOPRIM SULFAMETHOXAZOLE [Concomitant]
     Active Substance: SULFAMETHOXAZOLE\TRIMETHOPRIM
  52. VANCOMYCIN [Concomitant]
     Active Substance: VANCOMYCIN
  53. VIAGRA [Concomitant]
     Active Substance: SILDENAFIL CITRATE

REACTIONS (8)
  - Hip fracture [Not Recovered/Not Resolved]
  - Anhedonia [Not Recovered/Not Resolved]
  - Osteoporosis [Not Recovered/Not Resolved]
  - Bone density decreased [Unknown]
  - Emotional distress [Not Recovered/Not Resolved]
  - Femur fracture [Unknown]
  - Acute kidney injury [Recovered/Resolved]
  - Anxiety [Not Recovered/Not Resolved]

NARRATIVE: CASE EVENT DATE: 20110712
